FAERS Safety Report 7775781-X (Version None)
Quarter: 2011Q3

REPORT INFORMATION
  Report Type: 
  Country: None (occurrence: None)
  Receive Date: 20110923
  Receipt Date: 20110919
  Transmission Date: 20111222
  Serious: Yes (Other)
  Sender: FDA-Public Use
  Company Number: US-TEVA-301623USA

PATIENT
  Sex: Male
  Weight: 90.8 kg

DRUGS (7)
  1. SINEMET [Concomitant]
  2. PRAMIPEXOLE DIHYDROCHLORIDE [Concomitant]
  3. DEPAKOTE [Concomitant]
  4. BUPROPION HCL [Concomitant]
  5. AZILECT [Suspect]
     Indication: PARKINSON'S DISEASE
     Dosage: 0.5 MG DAILY
     Route: 048
     Dates: start: 20110801, end: 20110901
  6. ENTACAPONE [Concomitant]
  7. CLONAZEPAM [Concomitant]

REACTIONS (1)
  - DYSKINESIA [None]
